FAERS Safety Report 10929192 (Version 1)
Quarter: 2015Q1

REPORT INFORMATION
  Report Type: Spontaneous
  Country: None (occurrence: None)
  Receive Date: 20150317
  Receipt Date: 20150317
  Transmission Date: 20150721
  Serious: No
  Sender: FDA-Public Use
  Company Number: None

PATIENT
  Age: 32 Year
  Sex: Male

DRUGS (1)
  1. SUBUTEX [Suspect]
     Active Substance: BUPRENORPHINE HYDROCHLORIDE
     Dosage: 1 QD TO BID

REACTIONS (4)
  - Vomiting [None]
  - Hyperhidrosis [None]
  - Withdrawal syndrome [None]
  - Nausea [None]

NARRATIVE: CASE EVENT DATE: 20150312
